FAERS Safety Report 25710516 (Version 1)
Quarter: 2025Q3

REPORT INFORMATION
  Report Type: Spontaneous
  Country: US (occurrence: US)
  Receive Date: 20250821
  Receipt Date: 20250821
  Transmission Date: 20251020
  Serious: No
  Sender: Kenvue
  Company Number: US-KENVUE-20250710394

PATIENT
  Sex: Male

DRUGS (11)
  1. IMODIUM [Suspect]
     Active Substance: LOPERAMIDE HYDROCHLORIDE
     Indication: Diarrhoea
     Route: 065
  2. IMODIUM [Suspect]
     Active Substance: LOPERAMIDE HYDROCHLORIDE
     Indication: Faeces soft
  3. ORENITRAM [Concomitant]
     Active Substance: TREPROSTINIL
     Indication: Pulmonary arterial hypertension
     Dosage: UNK, THRICE A DAY
     Route: 048
     Dates: start: 202503, end: 2025
  4. ORENITRAM [Concomitant]
     Active Substance: TREPROSTINIL
     Dosage: 4 MILLIGRAM, THRICE A DAY
     Route: 048
     Dates: start: 2025
  5. ORENITRAM [Concomitant]
     Active Substance: TREPROSTINIL
     Route: 048
     Dates: start: 202503
  6. REMODULIN [Concomitant]
     Active Substance: TREPROSTINIL
     Indication: Pulmonary arterial hypertension
     Route: 042
     Dates: start: 2025, end: 202503
  7. REMODULIN [Concomitant]
     Active Substance: TREPROSTINIL
     Route: 042
     Dates: start: 202402, end: 202503
  8. OFEV [Concomitant]
     Active Substance: NINTEDANIB
     Indication: Product used for unknown indication
     Route: 065
     Dates: start: 202411, end: 202501
  9. OPSUMIT [Concomitant]
     Active Substance: MACITENTAN
     Indication: Product used for unknown indication
     Route: 065
  10. WINREVAIR [Concomitant]
     Active Substance: SOTATERCEPT-CSRK
     Indication: Product used for unknown indication
     Route: 065
  11. MIDODRINE HYDROCHLORIDE [Concomitant]
     Active Substance: MIDODRINE HYDROCHLORIDE
     Indication: Product used for unknown indication
     Route: 065

REACTIONS (1)
  - Drug ineffective [Unknown]
